FAERS Safety Report 7201946-1 (Version None)
Quarter: 2010Q4

REPORT INFORMATION
  Report Type: 
  Country: None (occurrence: None)
  Receive Date: 20101229
  Receipt Date: 20101215
  Transmission Date: 20110411
  Serious: Yes (Hospitalization)
  Sender: FDA-Public Use
  Company Number: JP-CELGENEUS-087-21880-10121740

PATIENT
  Sex: Male
  Weight: 54.4 kg

DRUGS (11)
  1. REVLIMID [Suspect]
     Indication: MULTIPLE MYELOMA
     Route: 048
     Dates: start: 20101105, end: 20101109
  2. REVLIMID [Suspect]
     Route: 048
     Dates: start: 20101113, end: 20101115
  3. REVLIMID [Suspect]
     Route: 048
     Dates: start: 20101125, end: 20101126
  4. LENADEX [Suspect]
     Indication: MULTIPLE MYELOMA
     Route: 048
     Dates: start: 20101105, end: 20101109
  5. LENADEX [Suspect]
     Route: 048
     Dates: start: 20101113, end: 20101116
  6. FLUCONAZOLE [Concomitant]
     Indication: PROPHYLAXIS
     Route: 048
  7. BAKTAR [Concomitant]
     Indication: PROPHYLAXIS
     Route: 048
  8. PARIET [Concomitant]
     Indication: PROPHYLAXIS
     Route: 048
  9. MAGNESIUM OXIDE [Concomitant]
     Indication: CONSTIPATION
     Route: 048
  10. REBAMIPIDE [Concomitant]
     Indication: PROPHYLAXIS
     Route: 048
  11. SODIUM HYDROGEN CARBONATE [Concomitant]
     Indication: PROPHYLAXIS
     Route: 048

REACTIONS (3)
  - GASTRIC ULCER [None]
  - NEUTROPENIA [None]
  - THROMBOCYTOPENIA [None]
